FAERS Safety Report 7712170-8 (Version None)
Quarter: 2011Q3

REPORT INFORMATION
  Report Type: 
  Country: None (occurrence: None)
  Receive Date: 20110826
  Receipt Date: 20110814
  Transmission Date: 20111222
  Serious: Yes (Death, Other)
  Sender: FDA-Public Use
  Company Number: NL-ACTELION-A-CH2011-52795

PATIENT
  Sex: Female
  Weight: 52 kg

DRUGS (2)
  1. TRACLEER [Suspect]
     Dosage: UNK , UNK
     Route: 048
     Dates: start: 20071020
  2. TRACLEER [Suspect]
     Indication: SKIN ULCER
     Dosage: 125 MG, BID
     Route: 048
     Dates: start: 20081020, end: 20101201

REACTIONS (1)
  - DEATH [None]
